FAERS Safety Report 9921515 (Version 1)
Quarter: 2014Q1

REPORT INFORMATION
  Report Type: Spontaneous
  Country: US (occurrence: US)
  Receive Date: 20140225
  Receipt Date: 20140225
  Transmission Date: 20141002
  Serious: No
  Sender: FDA-Public Use
  Company Number: US-PFIZER INC-2014047485

PATIENT
  Sex: 0

DRUGS (1)
  1. GLUCOTROL [Suspect]

REACTIONS (2)
  - Thyroid disorder [Unknown]
  - Prostatic disorder [Unknown]
